FAERS Safety Report 9289023 (Version 2)
Quarter: 2013Q3

REPORT INFORMATION
  Report Type: Spontaneous
  Country: US (occurrence: US)
  Receive Date: 20130514
  Receipt Date: 20130802
  Transmission Date: 20140515
  Serious: No
  Sender: FDA-Public Use
  Company Number: US-PFIZER INC-2013146853

PATIENT
  Age: 67 Year
  Sex: Male
  Weight: 106 kg

DRUGS (10)
  1. TIKOSYN [Suspect]
     Indication: ATRIAL FIBRILLATION
     Dosage: 250 UG, 2X/DAY
     Route: 048
     Dates: start: 20071227, end: 20130514
  2. TOPROL [Concomitant]
     Dosage: UNK
  3. WARFARIN [Concomitant]
     Dosage: UNK
  4. ASPIRIN [Concomitant]
     Dosage: UNK, 1X/DAY
  5. LOTREL [Concomitant]
     Dosage: UNK
  6. SYNTHROID [Concomitant]
     Dosage: UNK
  7. PREDNISONE [Concomitant]
     Dosage: UNK
  8. VITAMIN D [Concomitant]
     Dosage: UNK
  9. FOLIC ACID [Concomitant]
     Dosage: UNK
  10. LORTAB [Concomitant]
     Indication: ARTHRALGIA
     Dosage: UNK, AS NEEDED

REACTIONS (3)
  - Dyspnoea [Unknown]
  - Hyperhidrosis [Unknown]
  - Fatigue [Unknown]
